FAERS Safety Report 9766924 (Version 1)
Quarter: 2013Q4

REPORT INFORMATION
  Report Type: Spontaneous
  Country: US (occurrence: US)
  Receive Date: 20131217
  Receipt Date: 20131217
  Transmission Date: 20140711
  Serious: No
  Sender: FDA-Public Use
  Company Number: US-BIOGENIDEC-2013BI119594

PATIENT
  Age: 39 Year
  Sex: Female

DRUGS (1)
  1. TECFIDERA [Suspect]
     Indication: MULTIPLE SCLEROSIS
     Route: 048
     Dates: start: 20131130

REACTIONS (6)
  - Nasopharyngitis [Unknown]
  - Pyrexia [Unknown]
  - Nasal congestion [Unknown]
  - Dysphonia [Unknown]
  - Chills [Unknown]
  - Underdose [Unknown]
